FAERS Safety Report 8788804 (Version 1)
Quarter: 2012Q4

REPORT INFORMATION
  Report Type: 
  Country: US (occurrence: US)
  Receive Date: 20120916
  Receipt Date: 20120916
  Transmission Date: 20130627
  Serious: Yes (Other)
  Sender: FDA-Public Use
  Company Number: US-009507513-1209USA003836

PATIENT

DRUGS (2)
  1. PEGINTRON [Suspect]
     Indication: HEPATITIS C
     Dosage: UNK
     Dates: start: 20091102, end: 20101002
  2. REBETOL [Suspect]
     Indication: HEPATITIS C
     Dosage: UNK
     Dates: start: 20091102, end: 20101002

REACTIONS (2)
  - Upper limb fracture [Unknown]
  - Insomnia [Unknown]
